FAERS Safety Report 8976167 (Version 2)
Quarter: 2013Q1

REPORT INFORMATION
  Report Type: Spontaneous
  Country: CN (occurrence: CN)
  Receive Date: 20121220
  Receipt Date: 20130103
  Transmission Date: 20140127
  Serious: Yes (Hospitalization, Other)
  Sender: FDA-Public Use
  Company Number: CN-PFIZER INC-2012320246

PATIENT
  Age: 6 Year
  Sex: Female

DRUGS (3)
  1. LIDOCAINE HCL [Suspect]
     Indication: LOCAL ANAESTHESIA
     Dosage: 2ML OF 2% (1 ML), UNK
     Dates: start: 20060920
  2. LIDOCAINE HCL [Suspect]
     Indication: TOOTH DISORDER
  3. IODOPHOR [Concomitant]
     Dosage: INTRAORAL INJECTION OF 0.5% IODOPHOR DISINFECTION SOLUTION, UNK

REACTIONS (3)
  - Anaphylactic shock [Recovered/Resolved]
  - Respiratory arrest [Recovered/Resolved]
  - Cardiac arrest [Recovered/Resolved]
